FAERS Safety Report 20447675 (Version 1)
Quarter: 2022Q1

REPORT INFORMATION
  Report Type: Spontaneous
  Country: US (occurrence: US)
  Receive Date: 20220209
  Receipt Date: 20220209
  Transmission Date: 20220423
  Serious: No
  Sender: FDA-Public Use
  Company Number: US-CELGENE-USA-20220201255

PATIENT
  Sex: Female
  Weight: 68.100 kg

DRUGS (1)
  1. REVLIMID [Suspect]
     Active Substance: LENALIDOMIDE
     Indication: Plasma cell myeloma
     Dosage: 5 MILLIGRAM
     Route: 048

REACTIONS (10)
  - Drug intolerance [Unknown]
  - Platelet count increased [Unknown]
  - Neutrophil count abnormal [Unknown]
  - Feeling abnormal [Unknown]
  - Confusional state [Unknown]
  - White blood cell count decreased [Unknown]
  - Depression [Unknown]
  - Haemoglobin decreased [Unknown]
  - Haematocrit decreased [Unknown]
  - Asthenia [Unknown]
